FAERS Safety Report 17139017 (Version 3)
Quarter: 2020Q1

REPORT INFORMATION
  Report Type: Spontaneous
  Country: JP (occurrence: JP)
  Receive Date: 20191211
  Receipt Date: 20200129
  Transmission Date: 20200409
  Serious: Yes (Death, Life-Threatening, Hospitalization, Other)
  Sender: FDA-Public Use
  Company Number: JP-BIOVITRUM-2019JP4256

PATIENT
  Sex: Male
  Weight: 1 kg

DRUGS (7)
  1. ORFADIN [Suspect]
     Active Substance: NITISINONE
     Route: 048
     Dates: start: 20191106, end: 20191120
  2. ORFADIN [Suspect]
     Active Substance: NITISINONE
     Route: 048
     Dates: start: 20191120, end: 20191122
  3. RESPIA [Concomitant]
     Active Substance: CAFFEINE
  4. ORFADIN [Suspect]
     Active Substance: NITISINONE
     Indication: TYROSINAEMIA
     Route: 048
     Dates: start: 20191024, end: 20191106
  5. LACTULOSE. [Concomitant]
     Active Substance: LACTULOSE
     Dates: start: 20191030, end: 20191120
  6. KANAMYCIN [Concomitant]
     Active Substance: KANAMYCIN A SULFATE
     Route: 048
     Dates: start: 20191030, end: 20191120
  7. URSO 1A PHARMA [Concomitant]
     Route: 048
     Dates: start: 20191106, end: 20191120

REACTIONS (5)
  - General physical health deterioration [Not Recovered/Not Resolved]
  - Apnoeic attack [Unknown]
  - Haematuria [Recovering/Resolving]
  - Hepatic failure [Fatal]
  - Off label use [Unknown]

NARRATIVE: CASE EVENT DATE: 201910
